FAERS Safety Report 23014171 (Version 4)
Quarter: 2023Q4

REPORT INFORMATION
  Report Type: Spontaneous
  Country: CA (occurrence: CA)
  Receive Date: 20231002
  Receipt Date: 20231221
  Transmission Date: 20240110
  Serious: Yes (Other)
  Sender: FDA-Public Use
  Company Number: CA-ABBVIE-5427391

PATIENT
  Age: 62 Year
  Sex: Male

DRUGS (6)
  1. OZURDEX [Suspect]
     Active Substance: DEXAMETHASONE
     Indication: Retinal vein occlusion
     Dosage: TIME INTERVAL: AS NECESSARY
     Route: 050
  2. BEVACIZUMAB [Concomitant]
     Active Substance: BEVACIZUMAB
     Indication: Retinal vein occlusion
     Dosage: 3 INJECTIONS
  3. BRIMONIDINE TARTRATE\BRINZOLAMIDE [Concomitant]
     Active Substance: BRIMONIDINE TARTRATE\BRINZOLAMIDE
     Indication: Visual impairment
     Route: 065
  4. NEPAFENAC [Concomitant]
     Active Substance: NEPAFENAC
     Indication: Visual impairment
     Route: 047
  5. LUMIGAN [Concomitant]
     Active Substance: BIMATOPROST
     Indication: Glaucomatous optic neuropathy
     Route: 047
  6. COMBIGAN [Concomitant]
     Active Substance: BRIMONIDINE TARTRATE\TIMOLOL MALEATE
     Indication: Glaucomatous optic neuropathy
     Route: 047

REACTIONS (2)
  - Glaucomatous optic neuropathy [Unknown]
  - Product administered at inappropriate site [Unknown]
